FAERS Safety Report 4767832-1 (Version None)
Quarter: 2005Q3

REPORT INFORMATION
  Report Type: 
  Country: None (occurrence: None)
  Receive Date: 20050912
  Receipt Date: 20050831
  Transmission Date: 20060218
  Serious: Yes (Other)
  Sender: FDA-Public Use
  Company Number: 2005122789

PATIENT
  Age: 56 Year
  Sex: Female
  Weight: 51.7101 kg

DRUGS (5)
  1. GABAPENTIN [Suspect]
     Indication: NEUROPATHY PERIPHERAL
     Dosage: 300 MG, ORAL
     Route: 048
     Dates: start: 20030101
  2. TRAMADOL HCL [Concomitant]
  3. CLONAZEPAM [Concomitant]
  4. FOSAMAX [Concomitant]
  5. CARBATROL [Concomitant]

REACTIONS (4)
  - ABASIA [None]
  - CONDITION AGGRAVATED [None]
  - DRUG ABUSER [None]
  - NEUROPATHY PERIPHERAL [None]
